FAERS Safety Report 20965289 (Version 1)
Quarter: 2022Q2

REPORT INFORMATION
  Report Type: Report from Study
  Country: US (occurrence: US)
  Receive Date: 20220616
  Receipt Date: 20220616
  Transmission Date: 20220721
  Serious: Yes (Hospitalization)
  Sender: FDA-Public Use
  Company Number: US-GILEAD-2022-0585501

PATIENT
  Sex: Male

DRUGS (6)
  1. AZTREONAM LYSINE [Suspect]
     Active Substance: AZTREONAM LYSINE
     Indication: Pneumonia pseudomonal
     Dosage: 75 MG, TID EVERY OTHER MONTH
     Route: 055
  2. BACLOFEN [Concomitant]
     Active Substance: BACLOFEN
  3. SODIUM CHLORIDE [Concomitant]
     Active Substance: SODIUM CHLORIDE
  4. AZELASTINE [Concomitant]
     Active Substance: AZELASTINE
  5. FLUTICASONE [Concomitant]
     Active Substance: FLUTICASONE
  6. DIAZEPAM [Concomitant]
     Active Substance: DIAZEPAM

REACTIONS (2)
  - Respiratory disorder [Unknown]
  - Off label use [Not Recovered/Not Resolved]
